FAERS Safety Report 10957973 (Version 2)
Quarter: 2016Q2

REPORT INFORMATION
  Report Type: Spontaneous
  Country: US (occurrence: US)
  Receive Date: 20150326
  Receipt Date: 20160530
  Transmission Date: 20160815
  Serious: Yes (Hospitalization, Other)
  Sender: FDA-Public Use
  Company Number: US-JNJFOC-20150314014

PATIENT
  Age: 75 Year
  Sex: Male
  Weight: 120.2 kg

DRUGS (2)
  1. XARELTO [Suspect]
     Active Substance: RIVAROXABAN
     Indication: THROMBOSIS
     Route: 048
     Dates: start: 201408
  2. XARELTO [Suspect]
     Active Substance: RIVAROXABAN
     Indication: THROMBOSIS
     Route: 048
     Dates: start: 2014, end: 2014

REACTIONS (7)
  - Atrial fibrillation [Unknown]
  - Haemorrhage [Recovered/Resolved]
  - Internal haemorrhage [Unknown]
  - Heart valve replacement [Unknown]
  - Myelodysplastic syndrome [Unknown]
  - Vascular graft [Unknown]
  - Blood count abnormal [Unknown]

NARRATIVE: CASE EVENT DATE: 2014
